FAERS Safety Report 9752440 (Version 1)
Quarter: 2013Q4

REPORT INFORMATION
  Report Type: Spontaneous
  Country: US (occurrence: US)
  Receive Date: 20131213
  Receipt Date: 20131213
  Transmission Date: 20140711
  Serious: No
  Sender: FDA-Public Use
  Company Number: US-PFIZER INC-2013353224

PATIENT
  Age: 91 Year
  Sex: Female

DRUGS (2)
  1. ADVIL [Suspect]
     Indication: BACK PAIN
     Dosage: 200 MG, ONCE A DAY
     Route: 048
  2. MAXZIDE [Concomitant]
     Indication: FLUID RETENTION
     Dosage: UNK

REACTIONS (2)
  - Pruritus generalised [Not Recovered/Not Resolved]
  - Rash [Recovering/Resolving]
